FAERS Safety Report 5128192-X (Version None)
Quarter: 2006Q4

REPORT INFORMATION
  Report Type: 
  Country: None (occurrence: None)
  Receive Date: 20061011
  Receipt Date: 20060925
  Transmission Date: 20070319
  Serious: Yes (Hospitalization)
  Sender: FDA-Public Use
  Company Number: A-JP2006-13138

PATIENT
  Age: 81 Year
  Sex: Female
  Weight: 68 kg

DRUGS (10)
  1. TRACLEER [Suspect]
     Indication: PULMONARY HYPERTENSION
     Dosage: 62.5 MG, BID, ORAL; SEE IMAGE
     Route: 048
     Dates: start: 20060622, end: 20060711
  2. TRACLEER [Suspect]
     Indication: PULMONARY HYPERTENSION
     Dosage: 62.5 MG, BID, ORAL; SEE IMAGE
     Route: 048
     Dates: start: 20060712, end: 20060807
  3. TRACLEER [Suspect]
     Indication: PULMONARY HYPERTENSION
     Dosage: 62.5 MG, BID, ORAL; SEE IMAGE
     Route: 048
     Dates: start: 20060808, end: 20060822
  4. OLMESARTAN (OLMESARTAN) [Concomitant]
  5. WARFARIN SODIUM [Concomitant]
  6. RANITIDINE HYDROCHLORIDE [Concomitant]
  7. INDAPAMIDE [Concomitant]
  8. AZOSEMIDE (AZOSEMIDE) [Concomitant]
  9. ECABET (ECABET) [Concomitant]
  10. OXYGEN (OXYGEN) [Concomitant]

REACTIONS (4)
  - ALANINE AMINOTRANSFERASE INCREASED [None]
  - ASPARTATE AMINOTRANSFERASE INCREASED [None]
  - HEPATIC ENZYME INCREASED [None]
  - LIVER DISORDER [None]
